FAERS Safety Report 25855611 (Version 1)
Quarter: 2025Q3

REPORT INFORMATION
  Report Type: Spontaneous
  Country: US (occurrence: US)
  Receive Date: 20250927
  Receipt Date: 20250927
  Transmission Date: 20251021
  Serious: No
  Sender: RANBAXY
  Company Number: US-SUN PHARMACEUTICAL INDUSTRIES LTD-2025R1-501345

PATIENT
  Sex: Female

DRUGS (3)
  1. MORPHINE [Suspect]
     Active Substance: MORPHINE
     Indication: Scoliosis
     Route: 065
  2. MORPHINE [Suspect]
     Active Substance: MORPHINE
     Indication: Arthritis
  3. MORPHINE [Suspect]
     Active Substance: MORPHINE
     Indication: Intervertebral disc protrusion

REACTIONS (1)
  - Product dose omission issue [Unknown]
